FAERS Safety Report 8890344 (Version 1)
Quarter: 2012Q4

REPORT INFORMATION
  Report Type: 
  Country: FR (occurrence: FR)
  Receive Date: 20121106
  Receipt Date: 20121106
  Transmission Date: 20130627
  Serious: Yes (Other)
  Sender: FDA-Public Use
  Company Number: FR-BRISTOL-MYERS SQUIBB COMPANY-17040346

PATIENT
  Age: 41 Year
  Sex: Male
  Weight: 90 kg

DRUGS (3)
  1. REYATAZ [Suspect]
     Dates: start: 20090218, end: 20121005
  2. VIREAD [Suspect]
     Dates: start: 20090218
  3. TRUVADA [Suspect]
     Dates: start: 20090218

REACTIONS (2)
  - Renal failure [Unknown]
  - Crystalluria [Unknown]
